FAERS Safety Report 14104056 (Version 1)
Quarter: 2017Q4

REPORT INFORMATION
  Report Type: Spontaneous
  Country: US (occurrence: US)
  Receive Date: 20171018
  Receipt Date: 20171018
  Transmission Date: 20180321
  Serious: No
  Sender: FDA-Public Use
  Company Number: US-AMGEN-USASP2017094041

PATIENT
  Age: 82 Year
  Sex: Female
  Weight: 78.91 kg

DRUGS (2)
  1. PROLIA [Suspect]
     Active Substance: DENOSUMAB
     Indication: OSTEOPOROSIS
     Dosage: UNK UNK, Q6MO
     Route: 065
  2. QUININE [Concomitant]
     Active Substance: QUININE

REACTIONS (1)
  - Dysphonia [Unknown]
